FAERS Safety Report 16774389 (Version 4)
Quarter: 2020Q1

REPORT INFORMATION
  Report Type: Report from Study
  Country: None (occurrence: US)
  Receive Date: 20190905
  Receipt Date: 20200114
  Transmission Date: 20200409
  Serious: Yes (Other)
  Sender: FDA-Public Use
  Company Number: US-ABBVIE-19K-163-2910278-00

PATIENT
  Sex: Female

DRUGS (3)
  1. HUMIRA [Suspect]
     Active Substance: ADALIMUMAB
     Indication: RHEUMATOID ARTHRITIS
     Route: 058
     Dates: start: 201907, end: 2019
  2. HUMIRA [Suspect]
     Active Substance: ADALIMUMAB
     Indication: PSORIATIC ARTHROPATHY
     Route: 058
     Dates: start: 2019, end: 2019
  3. HUMIRA [Suspect]
     Active Substance: ADALIMUMAB
     Route: 058

REACTIONS (13)
  - Asthenia [Unknown]
  - Vomiting [Unknown]
  - Joint stiffness [Recovering/Resolving]
  - Device issue [Unknown]
  - Erythema [Unknown]
  - Joint swelling [Recovering/Resolving]
  - Loss of personal independence in daily activities [Recovered/Resolved]
  - Arthralgia [Recovering/Resolving]
  - Chills [Unknown]
  - Pain [Recovering/Resolving]
  - Mass [Unknown]
  - Mobility decreased [Unknown]
  - Nasopharyngitis [Unknown]

NARRATIVE: CASE EVENT DATE: 2019
